FAERS Safety Report 14200578 (Version 1)
Quarter: 2017Q4

REPORT INFORMATION
  Report Type: Other
  Country: KR (occurrence: KR)
  Receive Date: 20171117
  Receipt Date: 20171117
  Transmission Date: 20180321
  Serious: Yes (Hospitalization)
  Sender: FDA-Public Use
  Company Number: KR-CELLTRION INC.-2017KR015548

PATIENT

DRUGS (4)
  1. REMSIMA [Suspect]
     Active Substance: INFLIXIMAB
     Indication: CROHN^S DISEASE
     Dosage: 200 MG, SINGLE
     Route: 042
     Dates: start: 20170809, end: 20170809
  2. HARMONILAN [Concomitant]
     Indication: NUTRITIONAL SUPPLEMENTATION
     Dosage: 1600 ML, SINGLE
     Route: 048
     Dates: start: 20170823, end: 20170823
  3. REMSIMA [Suspect]
     Active Substance: INFLIXIMAB
     Dosage: 200 MG, SINGLE
     Route: 042
     Dates: start: 20170822, end: 20170822
  4. MESALAZINE [Concomitant]
     Active Substance: MESALAMINE
     Indication: CROHN^S DISEASE
     Dosage: 500 MG, TID
     Route: 048
     Dates: start: 20170717, end: 20170823

REACTIONS (2)
  - Pancreatitis [Recovered/Resolved]
  - Inappropriate schedule of drug administration [Unknown]

NARRATIVE: CASE EVENT DATE: 20170823
